FAERS Safety Report 8604961-6 (Version None)
Quarter: 2012Q3

REPORT INFORMATION
  Report Type: 
  Country: None (occurrence: None)
  Receive Date: 20120820
  Receipt Date: 20120816
  Transmission Date: 20120928
  Serious: Yes (Hospitalization)
  Sender: FDA-Public Use
  Company Number: US-PFIZER INC-2012202198

PATIENT
  Age: 66 Year
  Sex: Female
  Weight: 46.712 kg

DRUGS (4)
  1. CHANTIX [Suspect]
     Indication: SMOKING CESSATION THERAPY
     Dosage: UNK
     Route: 048
     Dates: start: 20110101
  2. CHANTIX [Suspect]
     Dosage: 0.5 MG, DAILY
     Route: 048
     Dates: start: 20120701, end: 20120703
  3. PHENYTOIN SODIUM [Concomitant]
     Indication: EPILEPSY
     Dosage: 100 MG, 3X/DAY
  4. PHENOBARBITAL [Concomitant]
     Indication: EPILEPSY
     Dosage: 64.8 MG, 3X/DAY

REACTIONS (2)
  - MALNUTRITION [None]
  - NAUSEA [None]
